FAERS Safety Report 22210862 (Version 1)
Quarter: 2023Q2

REPORT INFORMATION
  Report Type: Spontaneous
  Country: US (occurrence: US)
  Receive Date: 20230414
  Receipt Date: 20230414
  Transmission Date: 20230721
  Serious: No
  Sender: FDA-Public Use
  Company Number: US-GSK-US2023050114

PATIENT
  Age: 62 Year
  Sex: Female

DRUGS (2)
  1. NUCALA [Suspect]
     Active Substance: MEPOLIZUMAB
     Indication: Product used for unknown indication
     Dosage: UNK
  2. VARICELLA-ZOSTER VACCINE NOS [Suspect]
     Active Substance: VARICELLA-ZOSTER VACCINE
     Indication: Prophylaxis

REACTIONS (2)
  - Eye operation [Unknown]
  - Herpes zoster [Not Recovered/Not Resolved]

NARRATIVE: CASE EVENT DATE: 20230322
